FAERS Safety Report 7572002-8 (Version None)
Quarter: 2011Q2

REPORT INFORMATION
  Report Type: 
  Country: None (occurrence: None)
  Receive Date: 20110620
  Receipt Date: 20110607
  Transmission Date: 20111010
  Serious: Yes (Hospitalization)
  Sender: FDA-Public Use
  Company Number: US-DEXPHARM-20110741

PATIENT
  Age: 73 Year
  Sex: Male

DRUGS (1)
  1. OMEPRAZOLE [Suspect]
     Dosage: 20 MG ONCE A DAY, ORAL
     Route: 048
     Dates: start: 20110601, end: 20110603

REACTIONS (3)
  - HAEMATOCHEZIA [None]
  - DRUG INEFFECTIVE [None]
  - MELAENA [None]
